FAERS Safety Report 7950715-3 (Version None)
Quarter: 2011Q4

REPORT INFORMATION
  Report Type: 
  Country: None (occurrence: None)
  Receive Date: 20111201
  Receipt Date: 20111117
  Transmission Date: 20120403
  Serious: Yes (Hospitalization, Congenital Anomaly, Other)
  Sender: FDA-Public Use
  Company Number: DE-RANBAXY-2011RR-50536

PATIENT
  Sex: Male
  Weight: 4.12 kg

DRUGS (6)
  1. LORAZEPAM [Concomitant]
     Indication: DEPRESSION
     Dosage: 0.5 MG/DAY
     Route: 064
     Dates: start: 20101220, end: 20110126
  2. SERTRALINE HYDROCHLORIDE [Suspect]
     Indication: DEPRESSION
     Dosage: UNK
     Route: 064
     Dates: start: 20101220, end: 20110802
  3. SERTRALINE HYDROCHLORIDE [Suspect]
     Dosage: 100 MG/DAY
     Route: 064
  4. SERTRALINE HYDROCHLORIDE [Suspect]
     Dosage: 75 MG, UNK
     Route: 064
     Dates: end: 20110118
  5. FOLIO FORTE [Concomitant]
     Indication: PROPHYLAXIS OF NEURAL TUBE DEFECT
     Dosage: 0.8 MG/DAY
     Route: 064
     Dates: start: 20101104
  6. VOMEX A [Concomitant]
     Indication: VOMITING IN PREGNANCY
     Dosage: UNK
     Route: 064
     Dates: end: 20110303

REACTIONS (7)
  - TRANSAMINASES INCREASED [None]
  - HAEMANGIOMA CONGENITAL [None]
  - ATRIAL SEPTAL DEFECT [None]
  - PETECHIAE [None]
  - DRUG WITHDRAWAL SYNDROME NEONATAL [None]
  - LARGE FOR DATES BABY [None]
  - NEONATAL RESPIRATORY DISTRESS SYNDROME [None]
